FAERS Safety Report 19487858 (Version 2)
Quarter: 2021Q3

REPORT INFORMATION
  Report Type: Other
  Country: US (occurrence: US)
  Receive Date: 20210702
  Receipt Date: 20210720
  Transmission Date: 20211014
  Serious: Yes (Other)
  Sender: FDA-Public Use
  Company Number: US-ROCHE-2638767

PATIENT
  Sex: Female
  Weight: 57.2 kg

DRUGS (8)
  1. ACTEMRA [Suspect]
     Active Substance: TOCILIZUMAB
     Indication: IRIDOCYCLITIS
  2. ACTEMRA [Suspect]
     Active Substance: TOCILIZUMAB
  3. PREDNISONE. [Suspect]
     Active Substance: PREDNISONE
     Indication: POLYMYALGIA RHEUMATICA
     Route: 065
  4. ACTEMRA [Suspect]
     Active Substance: TOCILIZUMAB
     Indication: POLYMYALGIA RHEUMATICA
     Dosage: STRENGTH: 162 MG/0.9 ML
     Route: 058
  5. ACTEMRA [Suspect]
     Active Substance: TOCILIZUMAB
  6. CYCLOSPORINE. [Concomitant]
     Active Substance: CYCLOSPORINE
  7. ACTEMRA [Suspect]
     Active Substance: TOCILIZUMAB
  8. ACTEMRA [Suspect]
     Active Substance: TOCILIZUMAB

REACTIONS (7)
  - Hypokinesia [Unknown]
  - Vision blurred [Unknown]
  - Off label use [Unknown]
  - Illness [Unknown]
  - Steroid diabetes [Unknown]
  - Visual impairment [Unknown]
  - Dry eye [Unknown]
